FAERS Safety Report 23113313 (Version 13)
Quarter: 2024Q4

REPORT INFORMATION
  Report Type: Spontaneous
  Country: CA (occurrence: CA)
  Receive Date: 20231027
  Receipt Date: 20241219
  Transmission Date: 20250115
  Serious: Yes (Death, Hospitalization, Other)
  Sender: CELLTRION
  Company Number: CA-CELLTRION INC.-2023CA020505

PATIENT

DRUGS (28)
  1. INFLECTRA [Suspect]
     Active Substance: INFLIXIMAB-DYYB
     Indication: Crohn^s disease
     Dosage: 1100 MG, EVERY 8 WEEKS
     Route: 042
     Dates: start: 20210223, end: 20210223
  2. INFLECTRA [Suspect]
     Active Substance: INFLIXIMAB-DYYB
     Dosage: 10 MG/KG, 1000MG OR 10 MG/KG Q 0, 2 AND 6 WEEKS (RE-INDUCTION), THEN EVERY 6 WEEKS
     Route: 042
     Dates: start: 20210507, end: 20210910
  3. INFLECTRA [Suspect]
     Active Substance: INFLIXIMAB-DYYB
     Dosage: 500 MG, EVERY 8 WEEKS
     Route: 042
     Dates: start: 20211104, end: 20211104
  4. INFLECTRA [Suspect]
     Active Substance: INFLIXIMAB-DYYB
     Dosage: 1000 MG, EVERY 6 WEEKS
     Route: 042
     Dates: start: 20211229, end: 20211229
  5. INFLECTRA [Suspect]
     Active Substance: INFLIXIMAB-DYYB
     Dosage: 1000 MG,  Q 0, 2 AND 6 WEEKS (RE-INDUCTION), THEN EVERY 6 WEEKS
     Route: 042
     Dates: start: 20220301
  6. INFLECTRA [Suspect]
     Active Substance: INFLIXIMAB-DYYB
     Dosage: 1000 MG, Q 0, 2 AND 6 WEEKS (RE-INDUCTION), THEN EVERY 6 WEEKS
     Route: 042
     Dates: start: 20230905
  7. INFLECTRA [Suspect]
     Active Substance: INFLIXIMAB-DYYB
     Dosage: 1000 MG 5 WEEKS AND 6 DAYS
     Route: 042
     Dates: start: 20231016
  8. INFLECTRA [Suspect]
     Active Substance: INFLIXIMAB-DYYB
     Dosage: 1000 MG, Q 0, 2 AND 6 WEEKS (RE-INDUCTION),THEN EVERY 6 WEEKS
     Route: 042
     Dates: start: 20231128
  9. INFLECTRA [Suspect]
     Active Substance: INFLIXIMAB-DYYB
     Dosage: 1000 MG, Q 0, 2 AND 6 WEEKS (RE-INDUCTION),THEN EVERY 6 WEEKS
     Route: 042
     Dates: start: 20240109
  10. INFLECTRA [Suspect]
     Active Substance: INFLIXIMAB-DYYB
     Dosage: 1000 MG, Q 0, 2 AND 6 WEEKS (RE-INDUCTION),THEN EVERY 6 WEEKS
     Route: 042
     Dates: start: 20240109
  11. INFLECTRA [Suspect]
     Active Substance: INFLIXIMAB-DYYB
     Dosage: 1000 MG, EVERY 6 WEEKS
     Route: 042
     Dates: start: 20240221
  12. INFLECTRA [Suspect]
     Active Substance: INFLIXIMAB-DYYB
     Dosage: 1000 MG, EVERY 6 WEEKS
     Route: 042
     Dates: start: 20240403
  13. INFLECTRA [Suspect]
     Active Substance: INFLIXIMAB-DYYB
     Dosage: 1000 MG, EVERY 6 WEEKS
     Route: 042
     Dates: start: 20240403
  14. INFLECTRA [Suspect]
     Active Substance: INFLIXIMAB-DYYB
     Dosage: 1000 MG, EVERY 6 WEEKS
     Route: 042
     Dates: start: 20240514
  15. INFLECTRA [Suspect]
     Active Substance: INFLIXIMAB-DYYB
     Dosage: 1000 MG, AFTER 6 WEEKS (Q 0, 2 AND 6 WEEKS (RE-INDUCTION), THEN EVERY 6 WEEKS)
     Route: 042
     Dates: start: 20240626
  16. INFLECTRA [Suspect]
     Active Substance: INFLIXIMAB-DYYB
     Dosage: 1000 MG, AFTER 6 WEEKS (Q 0, 2 AND 6 WEEKS (RE-INDUCTION), THEN EVERY 6 WEEKS)
     Route: 042
     Dates: start: 20240626
  17. INFLECTRA [Suspect]
     Active Substance: INFLIXIMAB-DYYB
     Dosage: 1000 MG, AFTER 6 WEEKS (1000 MG, Q 0, 2 AND 6 WEEKS (RE-INDUCTION), THEN EVERY 6 WEEKS)
     Route: 042
     Dates: start: 20240809
  18. INFLECTRA [Suspect]
     Active Substance: INFLIXIMAB-DYYB
     Dosage: 1000 MG, AFTER 6 WEEKS AND 3 DAYS (PRESCRIBED EVERY 6 WEEKS)
     Route: 042
     Dates: start: 20240923
  19. INFLECTRA [Suspect]
     Active Substance: INFLIXIMAB-DYYB
     Dosage: 1000 MG, AFTER 6 WEEKS AND 3 DAYS (PRESCRIBED EVERY 6 WEEKS)
     Route: 042
     Dates: start: 20240923
  20. INFLECTRA [Suspect]
     Active Substance: INFLIXIMAB-DYYB
     Dosage: 1000 MG, AFTER 5 WEEKS AND 4 DAYS (PRESCRIBED EVERY 6 WEEKS)
     Route: 042
     Dates: start: 20241101
  21. CITALOPRAM [Concomitant]
     Active Substance: CITALOPRAM
     Dosage: 40 MG
     Route: 048
     Dates: start: 20240124
  22. IBUPROFEN [Concomitant]
     Active Substance: IBUPROFEN
     Dosage: 150 MG
     Route: 048
     Dates: start: 20240408
  23. MIRABEGRON [Concomitant]
     Active Substance: MIRABEGRON
     Dosage: 50 MG
     Route: 048
     Dates: start: 20240101
  24. MORPHINE [Concomitant]
     Active Substance: MORPHINE
     Dosage: 20 UG
     Route: 048
     Dates: start: 20240314
  25. MORPHINE [Concomitant]
     Active Substance: MORPHINE
     Dosage: 5 MG
     Route: 048
     Dates: start: 20240415
  26. PANTOPRAZOLE MAGNESIUM [Concomitant]
     Active Substance: PANTOPRAZOLE MAGNESIUM
     Dosage: 40 MG
     Route: 048
     Dates: start: 20240124
  27. PENTOSAN POLYSULFATE [Concomitant]
     Active Substance: PENTOSAN POLYSULFATE
     Dosage: 100 MG
     Route: 048
     Dates: start: 20240123
  28. POLYETHYLENE GLYCOLS [Concomitant]
     Active Substance: POLYETHYLENE GLYCOLS
     Dosage: 17 G
     Route: 048
     Dates: start: 20240131

REACTIONS (14)
  - Death [Fatal]
  - Condition aggravated [Recovering/Resolving]
  - Fatigue [Unknown]
  - Osteoarthritis [Recovering/Resolving]
  - Pain [Recovering/Resolving]
  - Movement disorder [Recovering/Resolving]
  - Fistula [Recovered/Resolved]
  - Mouth ulceration [Recovered/Resolved]
  - Arthralgia [Recovered/Resolved]
  - Uveitis [Recovered/Resolved]
  - Weight decreased [Unknown]
  - Ear lobe infection [Unknown]
  - Off label use [Unknown]
  - Off label use [Unknown]

NARRATIVE: CASE EVENT DATE: 20210507
